FAERS Safety Report 5246952-1 (Version None)
Quarter: 2007Q1

REPORT INFORMATION
  Report Type: 
  Country: None (occurrence: None)
  Receive Date: 20070226
  Receipt Date: 20070213
  Transmission Date: 20070707
  Serious: Yes (Hospitalization, Other)
  Sender: FDA-Public Use
  Company Number: US-PFIZER INC-2006055637

PATIENT
  Sex: Male
  Weight: 59 kg

DRUGS (3)
  1. BEXTRA [Suspect]
     Indication: PAIN MANAGEMENT
     Dates: start: 20040301, end: 20040401
  2. BEXTRA [Suspect]
     Indication: ARTHRITIS
  3. BEXTRA [Suspect]
     Indication: GOUT

REACTIONS (1)
  - PULMONARY EMBOLISM [None]
